FAERS Safety Report 12354612 (Version 1)
Quarter: 2016Q2

REPORT INFORMATION
  Report Type: Spontaneous
  Country: US (occurrence: None)
  Receive Date: 20160510
  Receipt Date: 20160510
  Transmission Date: 20160815
  Serious: Yes (Life-Threatening, Hospitalization, Other)
  Sender: FDA-Public Use
  Company Number: None

PATIENT
  Age: 68 Year
  Sex: Male
  Weight: 169.19 kg

DRUGS (1)
  1. RITUXAN [Suspect]
     Active Substance: RITUXIMAB
     Indication: CHRONIC LYMPHOCYTIC LEUKAEMIA
     Dates: start: 20160505, end: 20160505

REACTIONS (5)
  - Local swelling [None]
  - Cardio-respiratory arrest [None]
  - Needle issue [None]
  - Erythema [None]
  - Infusion site extravasation [None]

NARRATIVE: CASE EVENT DATE: 20160505
